FAERS Safety Report 4315144-2 (Version None)
Quarter: 2004Q1

REPORT INFORMATION
  Report Type: 
  Country: None (occurrence: None)
  Receive Date: 20040310
  Receipt Date: 20040227
  Transmission Date: 20041129
  Serious: Yes (Other)
  Sender: FDA-Public Use
  Company Number: NL-GLAXOSMITHKLINE-B0324983A

PATIENT
  Sex: Female

DRUGS (1)
  1. ACYCLOVIR [Suspect]

REACTIONS (2)
  - ACCIDENTAL EXPOSURE [None]
  - GLAUCOMA [None]
